FAERS Safety Report 24063740 (Version 1)
Quarter: 2024Q3

REPORT INFORMATION
  Report Type: Spontaneous
  Country: US (occurrence: US)
  Receive Date: 20240709
  Receipt Date: 20240709
  Transmission Date: 20241017
  Serious: No
  Sender: GLAXOSMITHKLINE
  Company Number: US-GSK-US2024082652

PATIENT
  Age: 54 Year
  Sex: Male

DRUGS (1)
  1. NUCALA [Suspect]
     Active Substance: MEPOLIZUMAB
     Indication: Nasal polyps
     Dosage: 100 MG, MO
     Dates: start: 20240702

REACTIONS (2)
  - Wrong technique in device usage process [Unknown]
  - Product dose omission issue [Unknown]

NARRATIVE: CASE EVENT DATE: 20240702
